FAERS Safety Report 5085020-9 (Version None)
Quarter: 2006Q3

REPORT INFORMATION
  Report Type: 
  Country: None (occurrence: None)
  Receive Date: 20060815
  Receipt Date: 20060728
  Transmission Date: 20061208
  Serious: Yes (Hospitalization, Other)
  Sender: FDA-Public Use
  Company Number: US200604002386

PATIENT
  Age: 54 Year
  Sex: Female

DRUGS (3)
  1. ZYPREXA [Suspect]
     Indication: BIPOLAR DISORDER
     Dosage: 15 MG, ORAL; SEE IMAGE
     Route: 048
     Dates: start: 19991101, end: 20010101
  2. LITHIUM           (LITHIUM) [Concomitant]
  3. ANTIHYPERTENSIVES [Concomitant]

REACTIONS (29)
  - ABDOMINAL DISCOMFORT [None]
  - AMENORRHOEA [None]
  - ASCITES [None]
  - BLINDNESS [None]
  - BLOOD PRESSURE INCREASED [None]
  - BLOOD SODIUM DECREASED [None]
  - DIALYSIS [None]
  - DIARRHOEA [None]
  - DRUG TOXICITY [None]
  - GASTRIC DISORDER [None]
  - GASTRIC ULCER HELICOBACTER [None]
  - GENERAL PHYSICAL HEALTH DETERIORATION [None]
  - HELICOBACTER INFECTION [None]
  - HYPOTHYROIDISM [None]
  - INJURY [None]
  - LACERATION [None]
  - MALAISE [None]
  - MENOPAUSE [None]
  - PANCREATITIS [None]
  - PLEURAL EFFUSION [None]
  - PNEUMONIA [None]
  - PROCEDURAL COMPLICATION [None]
  - PROTEIN TOTAL INCREASED [None]
  - PROTEIN URINE PRESENT [None]
  - RENAL FAILURE ACUTE [None]
  - SOMNOLENCE [None]
  - VISUAL DISTURBANCE [None]
  - WEIGHT INCREASED [None]
  - WHITE BLOOD CELL COUNT INCREASED [None]
